FAERS Safety Report 10228079 (Version 1)
Quarter: 2014Q2

REPORT INFORMATION
  Report Type: Spontaneous
  Country: US (occurrence: US)
  Receive Date: 20140610
  Receipt Date: 20140610
  Transmission Date: 20141212
  Serious: Yes (Life-Threatening, Hospitalization)
  Sender: FDA-Public Use
  Company Number: US-BAYER-2014-081421

PATIENT
  Age: 20 Year
  Sex: Female

DRUGS (4)
  1. YASMIN [Suspect]
     Indication: CONTRACEPTION
  2. LEXAPRO [Concomitant]
     Dosage: UNK
     Dates: start: 20060910
  3. NEXIUM [Concomitant]
     Dosage: UNK
     Dates: start: 20060910
  4. CORTISONE [Concomitant]
     Indication: RASH

REACTIONS (1)
  - Pulmonary embolism [Recovered/Resolved]
